FAERS Safety Report 4845639-4 (Version None)
Quarter: 2005Q4

REPORT INFORMATION
  Report Type: 
  Country: None (occurrence: None)
  Receive Date: 20051205
  Receipt Date: 20051128
  Transmission Date: 20060501
  Serious: Yes (Disabling)
  Sender: FDA-Public Use
  Company Number: HR-MERCK-0511HUN00017

PATIENT
  Age: 47 Year
  Sex: Female

DRUGS (4)
  1. ZOCOR [Suspect]
     Indication: HYPERCHOLESTEROLAEMIA
     Route: 048
     Dates: start: 20030201, end: 20030301
  2. BETAHISTINE HYDROCHLORIDE [Concomitant]
     Route: 065
  3. DIAZEPAM [Concomitant]
     Route: 065
  4. AMILORIDE HYDROCHLORIDE AND HYDROCHLOROTHIAZIDE [Concomitant]
     Route: 065

REACTIONS (1)
  - DEMENTIA [None]
